FAERS Safety Report 12131364 (Version 3)
Quarter: 2016Q2

REPORT INFORMATION
  Report Type: Spontaneous
  Country: US (occurrence: US)
  Receive Date: 20160301
  Receipt Date: 20160630
  Transmission Date: 20160815
  Serious: Yes (Other)
  Sender: FDA-Public Use
  Company Number: US-JNJFOC-20160101929

PATIENT
  Age: 59 Year
  Sex: Male

DRUGS (24)
  1. DRONABINOL. [Concomitant]
     Active Substance: DRONABINOL
  2. MORPHINE [Concomitant]
     Active Substance: MORPHINE
  3. NITROFURANTOIN. [Concomitant]
     Active Substance: NITROFURANTOIN
  4. PROMETHAZINE [Concomitant]
     Active Substance: PROMETHAZINE\PROMETHAZINE HYDROCHLORIDE
  5. XGEVA [Concomitant]
     Active Substance: DENOSUMAB
     Route: 058
  6. LEVOTHYROXINE. [Concomitant]
     Active Substance: LEVOTHYROXINE
     Dates: start: 2012
  7. ZOFRAN [Concomitant]
     Active Substance: ONDANSETRON HYDROCHLORIDE
  8. OMEPRAZOLE. [Concomitant]
     Active Substance: OMEPRAZOLE
     Dates: start: 2012
  9. ESCITALOPRAM [Concomitant]
     Active Substance: ESCITALOPRAM OXALATE
  10. ACETAMINOPHEN\HYDROCODONE BITARTRATE [Concomitant]
     Active Substance: ACETAMINOPHEN\HYDROCODONE BITARTRATE
     Dosage: 1 EVERY 4 HOURS AS NEEDED
  11. VALIUM [Concomitant]
     Active Substance: DIAZEPAM
  12. ACYCLOVIR. [Concomitant]
     Active Substance: ACYCLOVIR
  13. XARELTO [Suspect]
     Active Substance: RIVAROXABAN
     Indication: DEEP VEIN THROMBOSIS
     Route: 048
     Dates: start: 20140404, end: 201501
  14. METOPROLOL. [Concomitant]
     Active Substance: METOPROLOL
     Dates: start: 2009
  15. GABAPENTIN. [Concomitant]
     Active Substance: GABAPENTIN
     Dates: start: 2009
  16. ENOXAPARIN [Concomitant]
     Active Substance: ENOXAPARIN
  17. PROCHLORPERAZINE. [Concomitant]
     Active Substance: PROCHLORPERAZINE
  18. XARELTO [Suspect]
     Active Substance: RIVAROXABAN
     Indication: DEEP VEIN THROMBOSIS
     Route: 048
     Dates: start: 20140404, end: 201501
  19. XARELTO [Suspect]
     Active Substance: RIVAROXABAN
     Indication: THROMBOSIS PROPHYLAXIS
     Route: 048
     Dates: start: 20140404, end: 201501
  20. XARELTO [Suspect]
     Active Substance: RIVAROXABAN
     Indication: JUGULAR VEIN THROMBOSIS
     Route: 048
     Dates: start: 20140404, end: 201501
  21. LEXAPRO [Concomitant]
     Active Substance: ESCITALOPRAM OXALATE
     Dates: start: 2007
  22. FIRMAGON [Concomitant]
     Active Substance: DEGARELIX ACETATE
     Route: 058
  23. MARINOL [Concomitant]
     Active Substance: DRONABINOL
  24. LOSARTAN. [Concomitant]
     Active Substance: LOSARTAN
     Dates: start: 2012, end: 201509

REACTIONS (2)
  - Urinary bladder haemorrhage [Unknown]
  - Gastrointestinal haemorrhage [Recovered/Resolved]

NARRATIVE: CASE EVENT DATE: 20150106
